FAERS Safety Report 9734789 (Version 1)
Quarter: 2013Q4

REPORT INFORMATION
  Report Type: Spontaneous
  Country: US (occurrence: US)
  Receive Date: 20131206
  Receipt Date: 20131206
  Transmission Date: 20140711
  Serious: No
  Sender: FDA-Public Use
  Company Number: US-ENDO PHARMACEUTICALS INC.-OXYC20120011

PATIENT
  Age: 47 Year
  Sex: Female
  Weight: 47.22 kg

DRUGS (2)
  1. OXYCODONE HCL 15MG [Suspect]
     Indication: PAIN
     Route: 048
     Dates: start: 201112
  2. TOPAMAX [Concomitant]
     Indication: MIGRAINE
     Route: 048

REACTIONS (1)
  - Migraine [Not Recovered/Not Resolved]
